FAERS Safety Report 5923586-4 (Version None)
Quarter: 2008Q4

REPORT INFORMATION
  Report Type: 
  Country: None (occurrence: None)
  Receive Date: 20081020
  Receipt Date: 20081009
  Transmission Date: 20090506
  Serious: Yes (Hospitalization)
  Sender: FDA-Public Use
  Company Number: JP-ASTRAZENECA-2007AP07886

PATIENT
  Age: 22 Year
  Sex: Male
  Weight: 51 kg

DRUGS (16)
  1. DIPRIVAN [Suspect]
     Indication: GENERAL ANAESTHESIA
     Dosage: DIPRIVAN TCI
     Route: 042
     Dates: start: 20071001
  2. DIPRIVAN [Suspect]
     Dosage: EFFECT-SITE CONCENTRATION WAS 2 MICROGRAM/ML
     Route: 042
     Dates: start: 20071203, end: 20071203
  3. MIDAZOLAM HCL [Concomitant]
     Dosage: UNKNOWN DOSE
     Route: 065
     Dates: start: 20071001
  4. MIDAZOLAM HCL [Concomitant]
     Dosage: UNKNOWN DOSE
     Route: 065
     Dates: start: 20071203, end: 20071203
  5. ULTIVA [Concomitant]
     Dosage: UNKNOWN DOSE
     Route: 042
     Dates: start: 20071001
  6. ULTIVA [Concomitant]
     Dosage: UNKNOWN DOSE
     Route: 042
     Dates: start: 20071203, end: 20071203
  7. VECURONIUM BROMIDE [Concomitant]
     Dosage: UNKNOWN DOSE
     Dates: start: 20071001
  8. VECURONIUM BROMIDE [Concomitant]
     Dosage: UNKNOWN DOSE
     Route: 065
     Dates: start: 20071203, end: 20071203
  9. DEXART [Concomitant]
     Dosage: UNKNOWN DOSE
     Route: 065
     Dates: start: 20071001
  10. DEXART [Concomitant]
     Dosage: UNKNOWN DOSE
     Route: 065
     Dates: start: 20071203, end: 20071203
  11. ROPION [Concomitant]
     Dosage: UNKNOWN DOSE
     Dates: start: 20071001
  12. ROPION [Concomitant]
     Dosage: UNKNOWN DOSE
     Route: 042
     Dates: start: 20071203, end: 20071203
  13. ATROPINE [Concomitant]
     Dosage: UNKNOWN DOSE
     Dates: start: 20071001
  14. ATROPINE [Concomitant]
     Dosage: UNKNOWN DOSE
     Route: 065
     Dates: start: 20071203, end: 20071203
  15. NEOSTIGMINE METHYLSULFATE [Concomitant]
     Dosage: UNKNOWN DOSE
     Route: 065
     Dates: start: 20071203, end: 20071203
  16. VALPROATE SODIUM [Concomitant]

REACTIONS (1)
  - RHABDOMYOLYSIS [None]
